FAERS Safety Report 7678221-4 (Version None)
Quarter: 2011Q3

REPORT INFORMATION
  Report Type: 
  Country: None (occurrence: None)
  Receive Date: 20110811
  Receipt Date: 20110801
  Transmission Date: 20111222
  Serious: Yes (Other)
  Sender: FDA-Public Use
  Company Number: US-ELI_LILLY_AND_COMPANY-US201108000743

PATIENT
  Sex: Male

DRUGS (1)
  1. BYETTA [Suspect]
     Route: 058

REACTIONS (1)
  - PANCREATITIS [None]
